FAERS Safety Report 22533239 (Version 2)
Quarter: 2023Q2

REPORT INFORMATION
  Report Type: Spontaneous
  Country: JP (occurrence: JP)
  Receive Date: 20230607
  Receipt Date: 20230626
  Transmission Date: 20230722
  Serious: Yes (Death, Other)
  Sender: FDA-Public Use
  Company Number: JP-SAKK-2023SA171641AA

PATIENT
  Age: 83 Year
  Sex: Male

DRUGS (2)
  1. TAXOTERE [Suspect]
     Active Substance: DOCETAXEL
     Indication: Sarcoma
     Dosage: 75 MG/M2, Q3W
     Route: 041
  2. GEMCITABINE HYDROCHLORIDE [Concomitant]
     Active Substance: GEMCITABINE HYDROCHLORIDE
     Indication: Sarcoma
     Dosage: 900 MG/M2 (DAY 1, DAY 8), Q3W
     Route: 065

REACTIONS (5)
  - Pneumonia aspiration [Fatal]
  - Ileus paralytic [Fatal]
  - Decreased activity [Fatal]
  - Febrile neutropenia [Fatal]
  - Septic shock [Fatal]
